FAERS Safety Report 4773308-8 (Version None)
Quarter: 2005Q3

REPORT INFORMATION
  Report Type: 
  Country: None (occurrence: None)
  Receive Date: 20050920
  Receipt Date: 20050905
  Transmission Date: 20060218
  Serious: Yes (Hospitalization)
  Sender: FDA-Public Use
  Company Number: PHFR2005GB02973

PATIENT
  Age: 33 Year
  Sex: Female

DRUGS (6)
  1. GAVISCON [Concomitant]
     Indication: DYSPEPSIA
     Dosage: 10 MLS
     Route: 048
     Dates: start: 20050831, end: 20050902
  2. KAPAKE [Concomitant]
     Indication: ANALGESIC EFFECT
     Dosage: UNK, UNK
     Route: 048
     Dates: start: 20050831
  3. PETHIDINE [Concomitant]
     Indication: ANALGESIC EFFECT
     Dosage: 100MG/DAY
     Route: 030
     Dates: start: 20050901, end: 20050902
  4. PROCHLORPERAZINE [Concomitant]
     Indication: ANTIEMETIC SUPPORTIVE CARE
     Dosage: 12.5MG/DAY
     Route: 030
     Dates: start: 20050901, end: 20050902
  5. MISOPROSTOL [Suspect]
     Route: 065
  6. SYNTOCINON [Suspect]
     Indication: INDUCED LABOUR
     Dosage: 10 IU IN 500ML 0.9% SALINE
     Dates: start: 20050901, end: 20050902

REACTIONS (4)
  - CAESAREAN SECTION [None]
  - CERVIX OEDEMA [None]
  - DRUG EXPOSURE DURING PREGNANCY [None]
  - FAILED INDUCTION OF LABOUR [None]
